FAERS Safety Report 7880018-7 (Version None)
Quarter: 2011Q4

REPORT INFORMATION
  Report Type: 
  Country: None (occurrence: None)
  Receive Date: 20111101
  Receipt Date: 20111025
  Transmission Date: 20120403
  Serious: Yes (Life-Threatening, Hospitalization)
  Sender: FDA-Public Use
  Company Number: US-CELGENEUS-163-21660-11090876

PATIENT
  Sex: Male
  Weight: 66 kg

DRUGS (55)
  1. QUALAQUIN [Concomitant]
     Dosage: 324 MILLIGRAM
     Route: 048
  2. ROCEPHIN [Concomitant]
     Indication: PNEUMONIA
     Dosage: 1 GRAM
     Route: 041
     Dates: start: 20110903
  3. MAGNESIUM SULFATE [Concomitant]
     Dosage: 2 GRAM
     Route: 041
     Dates: start: 20110929, end: 20110929
  4. RED BLOOD CELLS [Concomitant]
     Dosage: 2 UNITS
     Route: 041
     Dates: start: 20110901
  5. ACTIQ [Concomitant]
     Indication: PAIN
     Dosage: 200 MICROGRAM
     Dates: start: 20110718
  6. ATIVAN [Concomitant]
     Indication: NAUSEA
     Dosage: .5 MILLIGRAM
     Route: 048
     Dates: start: 20110627, end: 20110903
  7. KLOR-CON [Concomitant]
     Dosage: 40 MILLIEQUIVALENTS
     Route: 048
     Dates: start: 20110822, end: 20110903
  8. 0.9% NS [Concomitant]
     Indication: DEHYDRATION
     Dosage: 1000 MILLILITER
     Route: 041
     Dates: start: 20110801, end: 20110801
  9. 0.9% NS [Concomitant]
     Dosage: 1000 MILLILITER
     Route: 041
     Dates: start: 20110815, end: 20110823
  10. FAMOTIDINE [Concomitant]
     Indication: PROPHYLAXIS
     Dosage: 20 MILLIGRAM
     Route: 041
     Dates: start: 20110904
  11. POTASSIUM CHLORIDE [Concomitant]
     Dosage: 40 MILLIEQUIVALENTS
     Route: 041
     Dates: start: 20111001, end: 20111001
  12. POTASSIUM CHLORIDE [Concomitant]
     Dosage: 20 MILLIEQUIVALENTS
     Route: 041
     Dates: start: 20111003, end: 20111003
  13. DOXYCYCLINE [Concomitant]
     Indication: INFECTION
     Dosage: 100 MILLIGRAM
     Route: 048
     Dates: start: 20110901, end: 20110928
  14. METOPROLOL TARTRATE [Concomitant]
     Dosage: 1.25 MILLIGRAM
     Route: 041
     Dates: start: 20110930, end: 20111003
  15. CALCIUM GLUCONATE [Concomitant]
     Dosage: 3 GRAM
     Route: 041
     Dates: start: 20110907, end: 20110907
  16. MAGNESIUM SULFATE [Concomitant]
     Route: 041
     Dates: start: 20111002, end: 20111002
  17. POTASSIUM PHOSPHATES [Concomitant]
     Dosage: 3 GRAM
     Route: 041
     Dates: start: 20110907, end: 20110907
  18. ASTEPRO [Concomitant]
     Indication: SEASONAL ALLERGY
     Dosage: 205.5 MICROGRAM
     Route: 045
  19. TRIPLE MIX (BENADRYL, MAALOX, LIDOCAINE) [Concomitant]
     Dosage: 1 TEASPOON
     Route: 048
     Dates: start: 20110718
  20. DOMEBORO [Concomitant]
     Indication: DERMATITIS
     Dosage: ONE APP
     Route: 061
     Dates: start: 20110810, end: 20110903
  21. MAGNESIUM SULFATE [Concomitant]
     Dosage: 2 GRAM
     Route: 041
     Dates: start: 20110815, end: 20110823
  22. MAGNESIUM SULFATE [Concomitant]
     Dosage: 2 GRAM
     Route: 041
     Dates: start: 20111003, end: 20111003
  23. LOVENOX [Concomitant]
     Dosage: 40 MILLIGRAM
     Route: 058
     Dates: start: 20111002
  24. OCEAN SPRAY [Concomitant]
     Route: 045
     Dates: start: 20111003
  25. PHOSNAK [Concomitant]
     Route: 065
     Dates: start: 20111003
  26. ABRAXANE [Suspect]
     Dosage: 20 MILLIGRAM/SQ. METER
     Route: 041
     Dates: start: 20110705, end: 20110809
  27. ERBITUX [Suspect]
     Dosage: 400 MILLIGRAM/SQ. METER
     Route: 065
     Dates: start: 20110627, end: 20110809
  28. ERBITUX [Suspect]
     Dosage: 250 MILLIGRAM/SQ. METER
     Route: 065
     Dates: start: 20110705
  29. CISPLATIN [Suspect]
     Dosage: 20 MILLIGRAM/SQ. METER
     Route: 065
     Dates: start: 20110705, end: 20110809
  30. METOPROLOL TARTRATE [Concomitant]
     Indication: HYPERTENSION
     Dosage: 50 MILLIGRAM
     Route: 048
  31. ZOFRAN [Concomitant]
     Indication: NAUSEA
     Dosage: 8 MILLIGRAM
     Route: 048
     Dates: start: 20110627, end: 20110903
  32. DEXAMETHASONE [Concomitant]
     Indication: PREMEDICATION
     Dosage: 10 MILLIGRAM
     Route: 041
     Dates: start: 20110627, end: 20110809
  33. GENASAL [Concomitant]
     Indication: NASAL CONGESTION
     Dosage: 2
     Route: 045
     Dates: start: 20111003
  34. METOPROLOL TARTRATE [Concomitant]
     Dosage: 1.25 MILLIGRAM
     Route: 041
     Dates: start: 20110929, end: 20110930
  35. METOPROLOL TARTRATE [Concomitant]
     Dosage: 25 MILLIGRAM
     Route: 065
     Dates: start: 20111003
  36. SINGULAIR [Concomitant]
     Indication: SEASONAL ALLERGY
     Dosage: 10 MILLIGRAM
     Route: 048
     Dates: start: 20111003
  37. VERAMYST [Concomitant]
     Indication: SEASONAL ALLERGY
     Dosage: 2 SPRAYS
     Route: 045
  38. POTASSIUM PHOSPHATES [Concomitant]
     Dosage: 30MMOL
     Route: 041
     Dates: start: 20111002, end: 20111002
  39. POTASSIUM CHLORIDE [Concomitant]
     Dosage: 20-40MEQ
     Route: 048
     Dates: start: 20110903, end: 20110904
  40. MAGNESIUM OXIDE [Concomitant]
     Dosage: 400 MILLIGRAM
     Route: 048
     Dates: start: 20110808, end: 20110815
  41. BENADRYL [Concomitant]
     Indication: PREMEDICATION
     Dosage: 50 MILLIGRAM
     Route: 041
     Dates: start: 20110627, end: 20110809
  42. REGULAR INSULIN [Concomitant]
     Dosage: SLIDING SCALE
     Route: 058
     Dates: start: 20110905
  43. CALCIUM GLUCONATE [Concomitant]
     Dosage: 2 GRAM
     Route: 041
     Dates: start: 20110906, end: 20110906
  44. POTASSIUM PHOSPHATES [Concomitant]
     Dosage: 30MMOL
     Route: 041
     Dates: start: 20110905, end: 20110905
  45. INSULIN [Concomitant]
     Dosage: SLIDING SCALE
     Route: 058
     Dates: start: 20110905, end: 20110901
  46. PROCHLORPERAZINE MALEATE [Concomitant]
     Indication: NAUSEA
     Dosage: 10 MILLIGRAM
     Route: 048
     Dates: start: 20110627, end: 20110903
  47. ZOFRAN [Concomitant]
     Indication: PREMEDICATION
     Dosage: 32 MILLIGRAM
     Route: 041
     Dates: start: 20110705, end: 20110809
  48. 0.9% NS [Concomitant]
     Dosage: 1000 MILLILITER
     Route: 041
     Dates: start: 20110808, end: 20110808
  49. 0.9% NS [Concomitant]
     Dosage: 1000 MILLILITER
     Route: 041
     Dates: start: 20110903, end: 20110903
  50. MORPHINE SULFATE [Concomitant]
     Indication: PAIN
     Dosage: 4 MILLIGRAM
     Route: 041
     Dates: start: 20110815, end: 20110815
  51. FAMOTIDINE [Concomitant]
     Indication: PREMEDICATION
     Dosage: 20 MILLIGRAM
     Route: 041
     Dates: start: 20110627, end: 20110809
  52. MAGNESIUM SULFATE [Concomitant]
     Dosage: 4 GRAM
     Route: 041
     Dates: start: 20110809, end: 20110809
  53. MAGNESIUM SULFATE [Concomitant]
     Dosage: 2 GRAM
     Route: 041
     Dates: start: 20110903, end: 20110903
  54. POTASSIUM CHLORIDE [Concomitant]
     Dosage: 40 MILLIEQUIVALENTS
     Route: 041
     Dates: start: 20110815, end: 20110823
  55. LOVENOX [Concomitant]
     Dosage: 40 MILLIGRAM
     Route: 058
     Dates: start: 20110901, end: 20110928

REACTIONS (7)
  - ENTERITIS INFECTIOUS [None]
  - DEHYDRATION [None]
  - SMALL INTESTINAL OBSTRUCTION [None]
  - FALL [None]
  - STOMATITIS [None]
  - DERMATITIS ACNEIFORM [None]
  - TACHYCARDIA [None]
